FAERS Safety Report 8428105-9 (Version None)
Quarter: 2012Q2

REPORT INFORMATION
  Report Type: 
  Country: None (occurrence: None)
  Receive Date: 20120611
  Receipt Date: 20120601
  Transmission Date: 20120825
  Serious: Yes (Other)
  Sender: FDA-Public Use
  Company Number: US-ASTRAZENECA-2012SE34564

PATIENT
  Age: 65 Year
  Sex: Male
  Weight: 77.1 kg

DRUGS (7)
  1. SEROQUEL XR [Suspect]
     Route: 048
     Dates: end: 20120531
  2. SEROQUEL XR [Suspect]
     Route: 048
  3. SEROQUEL XR [Suspect]
     Route: 048
  4. MEDICATIONS FOR SORE THROAT [Concomitant]
  5. SEROQUEL XR [Suspect]
     Route: 048
     Dates: end: 20120531
  6. SEROQUEL XR [Suspect]
     Indication: ANXIETY
     Route: 048
  7. SEROQUEL XR [Suspect]
     Indication: DEPRESSION
     Route: 048

REACTIONS (11)
  - DIZZINESS [None]
  - FATIGUE [None]
  - VISUAL IMPAIRMENT [None]
  - PYREXIA [None]
  - HYPERSOMNIA [None]
  - CONFUSIONAL STATE [None]
  - LUNG DISORDER [None]
  - CEREBROVASCULAR ACCIDENT [None]
  - AKINESIA [None]
  - THROAT IRRITATION [None]
  - NERVOUSNESS [None]
